FAERS Safety Report 9796023 (Version 1)
Quarter: 2014Q1

REPORT INFORMATION
  Report Type: Report from Study
  Country: US (occurrence: US)
  Receive Date: 20140103
  Receipt Date: 20140103
  Transmission Date: 20141002
  Serious: Yes (Other)
  Sender: FDA-Public Use
  Company Number: US-PURDUE-USA-2013-0109877

PATIENT
  Sex: Male

DRUGS (2)
  1. OXY CR TAB [Suspect]
     Indication: PAIN
     Dosage: 60 MG, TID
     Route: 048
     Dates: start: 201301
  2. OXY CR TAB [Suspect]
     Indication: GASTRIC CANCER

REACTIONS (3)
  - Malignant neoplasm progression [Unknown]
  - Pain [Unknown]
  - Intentional drug misuse [Unknown]
